FAERS Safety Report 20462431 (Version 2)
Quarter: 2022Q1

REPORT INFORMATION
  Report Type: Spontaneous
  Country: US (occurrence: None)
  Receive Date: 20220211
  Receipt Date: 20220325
  Transmission Date: 20220423
  Serious: Yes (Hospitalization, Other)
  Sender: FDA-Public Use
  Company Number: 2022A060761

PATIENT
  Sex: Female
  Weight: 46.7 kg

DRUGS (1)
  1. SYMBICORT [Suspect]
     Active Substance: BUDESONIDE\FORMOTEROL FUMARATE DIHYDRATE
     Indication: Chronic obstructive pulmonary disease
     Dosage: 60/4.5?G/D
     Route: 055

REACTIONS (8)
  - Cerebrovascular accident [Unknown]
  - Pneumothorax [Unknown]
  - Memory impairment [Not Recovered/Not Resolved]
  - Carotid artery occlusion [Unknown]
  - Dyspnoea [Unknown]
  - Intentional device misuse [Unknown]
  - Incorrect dose administered by device [Unknown]
  - Device malfunction [Unknown]
